FAERS Safety Report 4843733-5 (Version None)
Quarter: 2005Q4

REPORT INFORMATION
  Report Type: 
  Country: None (occurrence: None)
  Receive Date: 20051129
  Receipt Date: 20051116
  Transmission Date: 20060501
  Serious: Yes (Other)
  Sender: FDA-Public Use
  Company Number: GBS051018628

PATIENT
  Age: 12 Year
  Sex: Male
  Weight: 41.4 kg

DRUGS (2)
  1. STRATTERA [Suspect]
     Indication: ATTENTION DEFICIT/HYPERACTIVITY DISORDER
     Dosage: 18 MG,; 36 MG, DAILY (1/D)
     Dates: start: 20050601, end: 20050601
  2. STRATTERA [Suspect]
     Indication: ATTENTION DEFICIT/HYPERACTIVITY DISORDER
     Dosage: 18 MG,; 36 MG, DAILY (1/D)
     Dates: start: 20050601

REACTIONS (3)
  - ANGER [None]
  - DRUG INEFFECTIVE [None]
  - SUICIDAL IDEATION [None]
